FAERS Safety Report 18883438 (Version 1)
Quarter: 2021Q1

REPORT INFORMATION
  Report Type: Spontaneous
  Country: US (occurrence: US)
  Receive Date: 20210211
  Receipt Date: 20210211
  Transmission Date: 20210420
  Serious: No
  Sender: FDA-Public Use
  Company Number: None

PATIENT
  Age: 59 Year
  Sex: Female

DRUGS (1)
  1. IBRANCE [Suspect]
     Active Substance: PALBOCICLIB
     Indication: BREAST CANCER
     Dosage: OTHER FREQUENCY:DAILY X 21 DAYS;?
     Route: 048
     Dates: start: 20201230, end: 20210202

REACTIONS (5)
  - Therapy interrupted [None]
  - General physical health deterioration [None]
  - Urticaria [None]
  - Product formulation issue [None]
  - Wheezing [None]

NARRATIVE: CASE EVENT DATE: 202102
